FAERS Safety Report 6169264-0 (Version None)
Quarter: 2009Q2

REPORT INFORMATION
  Report Type: 
  Country: None (occurrence: None)
  Receive Date: 20090424
  Receipt Date: 20090419
  Transmission Date: 20091009
  Serious: Yes (Other)
  Sender: FDA-Public Use
  Company Number: 250393

PATIENT
  Age: 39 Year
  Sex: Male

DRUGS (5)
  1. EPINEPHRINE [Suspect]
     Indication: PRIAPISM
     Dosage: .1 MG,, INTRACAVERNOUS
     Route: 017
  2. MORPHINE [Concomitant]
  3. LORAZEPAM [Concomitant]
  4. TERBUTALINE SULFATE [Concomitant]
  5. LIDOCAINE [Concomitant]

REACTIONS (7)
  - ADRENOCORTICAL INSUFFICIENCY ACUTE [None]
  - ANGINA PECTORIS [None]
  - ANXIETY [None]
  - CHEST PAIN [None]
  - HEADACHE [None]
  - HYPERTENSION [None]
  - SINUS TACHYCARDIA [None]
